FAERS Safety Report 8089183-2 (Version None)
Quarter: 2012Q1

REPORT INFORMATION
  Report Type: 
  Country: None (occurrence: None)
  Receive Date: 20120128
  Receipt Date: 20110803
  Transmission Date: 20120608
  Serious: Yes (Hospitalization)
  Sender: FDA-Public Use
  Company Number: US-ABBOTT-11P-163-0732246-00

PATIENT
  Sex: Male
  Weight: 92.616 kg

DRUGS (10)
  1. AMBIEN [Concomitant]
     Indication: INSOMNIA
     Dosage: QHS
  2. HUMIRA [Suspect]
     Indication: RHEUMATOID ARTHRITIS
     Dates: start: 20070101
  3. HUMIRA [Suspect]
  4. PREDNISONE TAB [Suspect]
     Indication: PAIN
     Dates: end: 20101214
  5. FLEXERIL [Concomitant]
     Indication: MUSCLE TWITCHING
  6. FLEXERIL [Concomitant]
     Indication: PAIN
  7. OXYCONTIN [Concomitant]
     Indication: PAIN
  8. BYSTOLIC [Concomitant]
     Indication: PRODUCT USED FOR UNKNOWN INDICATION
  9. AMLODIPINE [Concomitant]
     Indication: PRODUCT USED FOR UNKNOWN INDICATION
  10. LISINOPRIL [Concomitant]
     Indication: BLOOD PRESSURE

REACTIONS (6)
  - BLOOD CHOLESTEROL INCREASED [None]
  - DIABETES MELLITUS [None]
  - PULMONARY FIBROSIS [None]
  - PNEUMONIA [None]
  - EXOSTOSIS [None]
  - DYSPNOEA [None]
